FAERS Safety Report 7337723-0 (Version None)
Quarter: 2011Q1

REPORT INFORMATION
  Report Type: 
  Country: None (occurrence: None)
  Receive Date: 20110228
  Receipt Date: 20110216
  Transmission Date: 20110831
  Serious: Yes (Hospitalization)
  Sender: FDA-Public Use
  Company Number: WAES 1102USA02505

PATIENT
  Age: 4 Year
  Sex: Male
  Weight: 19.0511 kg

DRUGS (4)
  1. RANITIDINE [Concomitant]
  2. DECADRON [Suspect]
  3. RISPERIDONE [Concomitant]
  4. VORINOSTAT [Concomitant]

REACTIONS (5)
  - STAPHYLOCOCCUS TEST POSITIVE [None]
  - SEPSIS [None]
  - CATHETER SITE INFECTION [None]
  - SKIN INFECTION [None]
  - CULTURE WOUND POSITIVE [None]
